FAERS Safety Report 20476229 (Version 3)
Quarter: 2023Q1

REPORT INFORMATION
  Report Type: Spontaneous
  Country: US (occurrence: US)
  Receive Date: 20220215
  Receipt Date: 20230303
  Transmission Date: 20230418
  Serious: No
  Sender: FDA-Public Use
  Company Number: US-TAKEDA-2022TUS009646

PATIENT
  Sex: Female

DRUGS (2)
  1. ENTYVIO [Suspect]
     Active Substance: VEDOLIZUMAB
     Indication: Colitis ulcerative
     Dosage: 300 MILLIGRAM
     Route: 042
     Dates: start: 201805
  2. PREDNISONE [Concomitant]
     Active Substance: PREDNISONE
     Indication: Colitis ulcerative
     Dosage: UNK

REACTIONS (10)
  - Poor venous access [Not Recovered/Not Resolved]
  - Irritable bowel syndrome [Unknown]
  - Gastrointestinal scarring [Not Recovered/Not Resolved]
  - Vein disorder [Not Recovered/Not Resolved]
  - Bowel movement irregularity [Unknown]
  - Diarrhoea [Unknown]
  - Presyncope [Not Recovered/Not Resolved]
  - Constipation [Unknown]
  - Rash [Not Recovered/Not Resolved]
  - Fatigue [Not Recovered/Not Resolved]
